FAERS Safety Report 10540724 (Version 1)
Quarter: 2014Q4

REPORT INFORMATION
  Report Type: Spontaneous
  Country: DK (occurrence: None)
  Receive Date: 20141022
  Receipt Date: 20141022
  Transmission Date: 20150529
  Serious: Yes (Disabling, Congenital Anomaly)
  Sender: FDA-Public Use
  Company Number: B1022935B

PATIENT
  Sex: Female

DRUGS (1)
  1. PAROXETINE HYDROCHLORIDE. [Suspect]
     Active Substance: PAROXETINE HYDROCHLORIDE
     Indication: DEPRESSION
     Route: 064
     Dates: end: 200302

REACTIONS (4)
  - Attention deficit/hyperactivity disorder [None]
  - Maternal drugs affecting foetus [None]
  - Personality disorder [None]
  - Drug withdrawal syndrome neonatal [None]

NARRATIVE: CASE EVENT DATE: 200302
